FAERS Safety Report 6005526-5 (Version None)
Quarter: 2008Q4

REPORT INFORMATION
  Report Type: 
  Country: None (occurrence: None)
  Receive Date: 20081216
  Receipt Date: 20081216
  Transmission Date: 20090506
  Serious: Yes (Other)
  Sender: FDA-Public Use
  Company Number: None

PATIENT
  Sex: Female
  Weight: 90 kg

DRUGS (5)
  1. CEFTRIAXONE [Suspect]
     Dates: start: 20080814, end: 20080819
  2. CEFTAZIDIME [Suspect]
  3. MEROPENEM [Concomitant]
  4. VANCOMYCIN [Suspect]
  5. FOSPHENYTOIN [Suspect]

REACTIONS (3)
  - LOCAL SWELLING [None]
  - MENINGITIS [None]
  - RASH [None]
